FAERS Safety Report 12182073 (Version 1)
Quarter: 2016Q1

REPORT INFORMATION
  Report Type: Spontaneous
  Country: US (occurrence: US)
  Receive Date: 20160315
  Receipt Date: 20160315
  Transmission Date: 20160526
  Serious: Yes (Other)
  Sender: FDA-Public Use
  Company Number: US-CUTISPHARMA, INC.-1049132

PATIENT
  Age: 14 Month
  Sex: Male

DRUGS (1)
  1. FIRST LANSOPRAZOLE RX [Suspect]
     Active Substance: LANSOPRAZOLE
     Indication: GASTROOESOPHAGEAL REFLUX DISEASE
     Route: 048
     Dates: start: 20150901, end: 20160226

REACTIONS (1)
  - Infantile vomiting [Recovered/Resolved]

NARRATIVE: CASE EVENT DATE: 20160220
